FAERS Safety Report 23842536 (Version 1)
Quarter: 2024Q2

REPORT INFORMATION
  Report Type: Spontaneous
  Country: BR (occurrence: BR)
  Receive Date: 20240510
  Receipt Date: 20240510
  Transmission Date: 20240716
  Serious: Yes (Hospitalization, Other)
  Sender: FDA-Public Use
  Company Number: BR-TEVA-VS-3195057

PATIENT
  Age: 33 Year
  Sex: Female
  Weight: 60 kg

DRUGS (6)
  1. CARBOPLATIN [Suspect]
     Active Substance: CARBOPLATIN
     Indication: Cervix carcinoma
     Dosage: CARBOPLATIN CALCULATED 546 MG (INTRAVENOUS) IN 250 ML OF GLUCOSE SOLUTION OVER 1 HOUR.
     Route: 042
     Dates: start: 20240221, end: 20240221
  2. PACLITAXEL [Suspect]
     Active Substance: PACLITAXEL
     Indication: Cervix carcinoma
     Dosage: PACLITAXEL 248 MG (INTRAVENOUS) IN 500 ML OF SALINE SOLUTION OVER 3 HOURS
     Route: 042
     Dates: start: 20240221, end: 20240221
  3. DEXAMETHASONE [Concomitant]
     Active Substance: DEXAMETHASONE
  4. HYDROCORTISONE [Concomitant]
     Active Substance: HYDROCORTISONE
  5. DIPHENHYDRAMINE [Concomitant]
     Active Substance: DIPHENHYDRAMINE
  6. ONDANSETRON [Concomitant]
     Active Substance: ONDANSETRON

REACTIONS (2)
  - Neutropenia [Recovered/Resolved]
  - Haemoglobinaemia [Recovered/Resolved]

NARRATIVE: CASE EVENT DATE: 20240315
